FAERS Safety Report 9494927 (Version 1)
Quarter: 2013Q3

REPORT INFORMATION
  Report Type: Spontaneous
  Country: ES (occurrence: ES)
  Receive Date: 20130903
  Receipt Date: 20130903
  Transmission Date: 20140515
  Serious: Yes (Other)
  Sender: FDA-Public Use
  Company Number: ES-LUNDBECK-DKLU1093268

PATIENT
  Age: 3 Year
  Sex: Male

DRUGS (2)
  1. ONFI [Suspect]
     Indication: EPILEPSY
     Route: 048
     Dates: start: 20130820
  2. DEPAKINE [Concomitant]
     Indication: PRODUCT USED FOR UNKNOWN INDICATION
     Dates: start: 20120907

REACTIONS (3)
  - Inappropriate affect [Unknown]
  - Staring [Unknown]
  - Petit mal epilepsy [Unknown]
